FAERS Safety Report 9838713 (Version 1)
Quarter: 2014Q1

REPORT INFORMATION
  Report Type: Spontaneous
  Country: US (occurrence: None)
  Receive Date: 20140117
  Receipt Date: 20140117
  Transmission Date: 20141002
  Serious: Yes (Hospitalization)
  Sender: FDA-Public Use
  Company Number: None

PATIENT
  Age: 89 Year
  Sex: Male
  Weight: 70 kg

DRUGS (1)
  1. HYDROMORPHONE [Suspect]
     Indication: PAIN
     Route: 048
     Dates: start: 20131211, end: 20131212

REACTIONS (1)
  - Myoclonus [None]
